FAERS Safety Report 5915933-4 (Version None)
Quarter: 2008Q4

REPORT INFORMATION
  Report Type: 
  Country: None (occurrence: None)
  Receive Date: 20081010
  Receipt Date: 20081008
  Transmission Date: 20090506
  Serious: Yes (Disabling, Other)
  Sender: FDA-Public Use
  Company Number: AU-MERCK-0806AUS00025

PATIENT
  Age: 74 Year
  Sex: Female
  Weight: 90 kg

DRUGS (33)
  1. FOSAMAX [Suspect]
     Indication: OSTEOPOROSIS
     Route: 048
     Dates: end: 20080401
  2. ALLOPURINOL [Concomitant]
     Route: 048
  3. AMITRIPTYLINE HYDROCHLORIDE [Concomitant]
     Route: 048
  4. HYPROMELLOSE [Concomitant]
     Route: 047
  5. IRBESARTAN [Concomitant]
     Route: 048
  6. ATORVASTATIN CALCIUM [Concomitant]
     Route: 048
  7. POLYVINYL ALCOHOL [Concomitant]
     Route: 047
  8. WARFARIN SODIUM [Concomitant]
     Route: 048
  9. NITRAZEPAM [Concomitant]
     Route: 048
  10. ISOSORBIDE MONONITRATE [Concomitant]
     Route: 048
  11. ALUMINUM HYDROXIDE AND DIMETHICONE AND MAGNESIUM HYDROXIDE [Concomitant]
     Route: 048
  12. NICORANDIL [Concomitant]
     Route: 048
  13. NITROGLYCERIN [Concomitant]
     Route: 065
  14. BUPRENORPHINE [Concomitant]
     Route: 065
  15. ACETAMINOPHEN [Concomitant]
     Route: 048
  16. PERHEXILINE MALEATE [Concomitant]
     Route: 048
  17. PREDNISOLONE [Concomitant]
     Route: 048
  18. SALICYLIC ACID AND SULFUR [Concomitant]
     Route: 061
  19. PANTOPRAZOLE SODIUM [Concomitant]
     Route: 048
  20. LEVOTHYROXINE SODIUM [Concomitant]
     Route: 048
  21. METOPROLOL SUCCINATE [Concomitant]
     Route: 048
  22. METOPROLOL SUCCINATE [Concomitant]
     Route: 048
  23. FUROSEMIDE [Concomitant]
     Route: 048
  24. PNEUMOCOCCAL 23V POLYSACCHARIDE VACCINE [Concomitant]
     Indication: PROPHYLAXIS
     Route: 065
     Dates: start: 20000716
  25. PNEUMOCOCCAL 23V POLYSACCHARIDE VACCINE [Concomitant]
     Route: 065
     Dates: start: 20060306
  26. INFLUENZA VIRUS VACCINE (UNSPECIFIED) [Concomitant]
     Route: 065
     Dates: start: 20010326
  27. INFLUENZA VIRUS VACCINE (UNSPECIFIED) [Concomitant]
     Route: 065
     Dates: start: 20020405
  28. INFLUENZA VIRUS VACCINE (UNSPECIFIED) [Concomitant]
     Route: 065
     Dates: start: 20030325
  29. INFLUENZA VIRUS SPLIT VIRION 3V VACCINE INACTIVATED [Concomitant]
     Route: 065
     Dates: start: 20040223
  30. INFLUENZA VIRUS SPLIT VIRION 3V VACCINE INACTIVATED [Concomitant]
     Route: 065
     Dates: start: 20050321
  31. INFLUENZA VIRUS SPLIT VIRION 3V VACCINE INACTIVATED [Concomitant]
     Route: 065
     Dates: start: 20060306
  32. INFLUENZA VIRUS SPLIT VIRION 3V VACCINE INACTIVATED [Concomitant]
     Route: 065
     Dates: start: 20070326
  33. INFLUENZA VIRUS SPLIT VIRION 3V VACCINE INACTIVATED [Concomitant]
     Route: 065
     Dates: start: 20080306

REACTIONS (12)
  - ACTINIC KERATOSIS [None]
  - CARDIAC FAILURE [None]
  - CONJUNCTIVITIS [None]
  - HERPES ZOSTER [None]
  - HYPOTHYROIDISM [None]
  - MUSCULOSKELETAL PAIN [None]
  - NEUROPATHY PERIPHERAL [None]
  - OSTEOARTHRITIS [None]
  - OSTEONECROSIS [None]
  - PNEUMONIA [None]
  - RENAL IMPAIRMENT [None]
  - SCIATICA [None]
